FAERS Safety Report 7432984-1 (Version None)
Quarter: 2011Q2

REPORT INFORMATION
  Report Type: 
  Country: None (occurrence: None)
  Receive Date: 20110422
  Receipt Date: 20110412
  Transmission Date: 20111010
  Serious: Yes (Other)
  Sender: FDA-Public Use
  Company Number: GR-JNJFOC-20110405407

PATIENT
  Age: 20 Year
  Sex: Female

DRUGS (1)
  1. INFLIXIMAB, RECOMBINANT [Suspect]
     Indication: CROHN'S DISEASE
     Dosage: 30 WEEKS OF TREATMENT FOR A TOTAL OF 6 DOSES
     Route: 042

REACTIONS (6)
  - TACHYCARDIA [None]
  - DYSPNOEA [None]
  - DYSPHONIA [None]
  - LARYNGOSPASM [None]
  - CYANOSIS [None]
  - INFUSION RELATED REACTION [None]
